FAERS Safety Report 15660263 (Version 1)
Quarter: 2018Q4

REPORT INFORMATION
  Report Type: Spontaneous
  Country: MY (occurrence: MY)
  Receive Date: 20181127
  Receipt Date: 20181127
  Transmission Date: 20190205
  Serious: Yes (Other)
  Sender: FDA-Public Use
  Company Number: MY-ROCHE-2220516

PATIENT
  Age: 75 Year
  Sex: Male

DRUGS (3)
  1. ALTEPLASE. [Suspect]
     Active Substance: ALTEPLASE
     Indication: PERIPHERAL ARTERY THROMBOSIS
     Route: 042
  2. APIXABAN [Concomitant]
     Active Substance: APIXABAN
     Route: 065
  3. ENOXAPARIN [Suspect]
     Active Substance: ENOXAPARIN
     Indication: PERIPHERAL ARTERY THROMBOSIS
     Route: 058

REACTIONS (2)
  - Amaurosis fugax [Recovered/Resolved]
  - Retinal artery embolism [Recovered/Resolved]
